FAERS Safety Report 22099927 (Version 2)
Quarter: 2023Q2

REPORT INFORMATION
  Report Type: Spontaneous
  Country: US (occurrence: US)
  Receive Date: 20230315
  Receipt Date: 20230404
  Transmission Date: 20230722
  Serious: Yes (Hospitalization, Other)
  Sender: FDA-Public Use
  Company Number: US-AMGEN-USASP2023042068

PATIENT
  Age: 79 Year
  Sex: Male
  Weight: 87.528 kg

DRUGS (2)
  1. PROCRIT [Suspect]
     Active Substance: ERYTHROPOIETIN
     Indication: Renal failure
     Dosage: UNK
     Route: 065
  2. RETACRIT [Suspect]
     Active Substance: EPOETIN ALFA-EPBX
     Indication: Product used for unknown indication
     Dosage: 20000 UNIT
     Route: 065

REACTIONS (4)
  - Haemorrhage [Not Recovered/Not Resolved]
  - Deafness [Not Recovered/Not Resolved]
  - Product use issue [Unknown]
  - Blood disorder [Unknown]

NARRATIVE: CASE EVENT DATE: 20210101
